FAERS Safety Report 19890862 (Version 2)
Quarter: 2022Q1

REPORT INFORMATION
  Report Type: Spontaneous
  Country: SV (occurrence: SV)
  Receive Date: 20210928
  Receipt Date: 20220110
  Transmission Date: 20220424
  Serious: Yes (Death, Hospitalization, Other)
  Sender: FDA-Public Use
  Company Number: SV-NOVARTISPH-NVSC2021SV218369

PATIENT
  Age: 81 Year
  Sex: Female

DRUGS (1)
  1. GLIVEC [Suspect]
     Active Substance: IMATINIB MESYLATE
     Indication: Chronic myeloid leukaemia
     Dosage: 400 MG (1X400 MG)
     Route: 065

REACTIONS (6)
  - Death [Fatal]
  - Skin ulcer [Unknown]
  - Hangnail [Unknown]
  - Foot fracture [Unknown]
  - Pain [Unknown]
  - Fall [Unknown]

NARRATIVE: CASE EVENT DATE: 20211212
